FAERS Safety Report 6627072-8 (Version None)
Quarter: 2010Q1

REPORT INFORMATION
  Report Type: 
  Country: None (occurrence: None)
  Receive Date: 20100311
  Receipt Date: 20090714
  Transmission Date: 20100710
  Serious: No
  Sender: FDA-Public Use
  Company Number: A0796775A

PATIENT
  Age: 57 Year
  Sex: Female

DRUGS (1)
  1. NICORETTE [Suspect]
     Dates: start: 20090709, end: 20090710

REACTIONS (4)
  - ORAL DISCOMFORT [None]
  - ORAL PAIN [None]
  - STOMATITIS [None]
  - THERMAL BURN [None]
